FAERS Safety Report 6231489-3 (Version None)
Quarter: 2009Q2

REPORT INFORMATION
  Report Type: 
  Country: None (occurrence: None)
  Receive Date: 20090616
  Receipt Date: 20090609
  Transmission Date: 20091009
  Serious: Yes (Other)
  Sender: FDA-Public Use
  Company Number: A0789733A

PATIENT
  Age: 52 Year
  Sex: Male

DRUGS (2)
  1. MALARONE [Suspect]
     Indication: MALARIA PROPHYLAXIS
     Dosage: 1TAB PER DAY
     Route: 048
     Dates: start: 20090523, end: 20090501
  2. ANTIHYPERTENSIVE [Concomitant]

REACTIONS (5)
  - DELIRIUM [None]
  - DIZZINESS [None]
  - MALAISE [None]
  - NAUSEA [None]
  - NIGHTMARE [None]
